FAERS Safety Report 14991806 (Version 1)
Quarter: 2018Q2

REPORT INFORMATION
  Report Type: Report from Study
  Country: NL (occurrence: NL)
  Receive Date: 20180608
  Receipt Date: 20180608
  Transmission Date: 20180711
  Serious: Yes (Life-Threatening)
  Sender: FDA-Public Use
  Company Number: PHHY2015NL118608

PATIENT
  Age: 53 Year
  Sex: Male

DRUGS (1)
  1. OMNITROPE [Suspect]
     Active Substance: SOMATROPIN
     Indication: GROWTH HORMONE DEFICIENCY
     Dosage: 0.4 MG, QD (5 MG/ 1.5 ML SOLUTION FOR INJECTION)
     Route: 065
     Dates: start: 20130523

REACTIONS (1)
  - Meningioma benign [Unknown]

NARRATIVE: CASE EVENT DATE: 20150415
